FAERS Safety Report 10390627 (Version 1)
Quarter: 2014Q3

REPORT INFORMATION
  Report Type: Spontaneous
  Country: GB (occurrence: None)
  Receive Date: 20140814
  Receipt Date: 20140814
  Transmission Date: 20150326
  Serious: Yes (Hospitalization)
  Sender: FDA-Public Use
  Company Number: AUR-APL-2014-08512

PATIENT
  Age: 56 Year
  Sex: Female
  Weight: 68 kg

DRUGS (6)
  1. PROCHLORPERAZINE. [Concomitant]
     Active Substance: PROCHLORPERAZINE
  2. SODIUM VALPROATE SODIUM) [Concomitant]
  3. SODIUM VALPROATE (VALPROAE SODIUM) [Concomitant]
  4. TOPIRAMATE (TOPIRAMATE) UNKNOWN [Suspect]
     Active Substance: TOPIRAMATE
     Indication: MIGRAINE
     Dosage: UNK, UNKNOWN
     Dates: start: 20131205
  5. ALMOGRAN (ALMOTRIPTAN MALATE) [Concomitant]
  6. SODIUM VALPROATE (VALPROATE SODIUM) [Concomitant]
     Active Substance: VALPROATE SODIUM

REACTIONS (10)
  - Supraventricular tachycardia [None]
  - Palpitations [None]
  - Hyperventilation [None]
  - Heart rate increased [None]
  - Malaise [None]
  - Dizziness [None]
  - Chest discomfort [None]
  - Presyncope [None]
  - Tremor [None]
  - Speech disorder [None]

NARRATIVE: CASE EVENT DATE: 20140211
